FAERS Safety Report 6235921-0 (Version None)
Quarter: 2009Q2

REPORT INFORMATION
  Report Type: 
  Country: None (occurrence: None)
  Receive Date: 20090617
  Receipt Date: 20090617
  Transmission Date: 20091009
  Serious: No
  Sender: FDA-Public Use
  Company Number: None

PATIENT
  Age: 22 Year
  Sex: Male
  Weight: 113.3993 kg

DRUGS (2)
  1. ZICAM COLD REMEDY [Suspect]
     Indication: NASOPHARYNGITIS
     Dosage: 1 SPRAY IN EACH NOSTRIL ONCE NASAL
     Route: 045
     Dates: start: 20070409, end: 20070409
  2. ZICAM COLD REMEDY [Suspect]
     Indication: RHINORRHOEA
     Dosage: 1 SPRAY IN EACH NOSTRIL ONCE NASAL
     Route: 045
     Dates: start: 20070409, end: 20070409

REACTIONS (2)
  - BURNING SENSATION [None]
  - PAROSMIA [None]
